FAERS Safety Report 19750368 (Version 1)
Quarter: 2021Q3

REPORT INFORMATION
  Report Type: Spontaneous
  Country: US (occurrence: US)
  Receive Date: 20210826
  Receipt Date: 20210826
  Transmission Date: 20211014
  Serious: Yes (Hospitalization)
  Sender: FDA-Public Use
  Company Number: None

PATIENT
  Age: 62 Year
  Sex: Male

DRUGS (14)
  1. PIOGLITAZONE. [Concomitant]
     Active Substance: PIOGLITAZONE
  2. GABAPENTIN. [Concomitant]
     Active Substance: GABAPENTIN
  3. LEVEMIR [Concomitant]
     Active Substance: INSULIN DETEMIR
  4. JANUMET [Concomitant]
     Active Substance: METFORMIN HYDROCHLORIDE\SITAGLIPTIN PHOSPHATE
  5. ATORVASTATIN [Concomitant]
     Active Substance: ATORVASTATIN
  6. TOUJEO [Concomitant]
     Active Substance: INSULIN GLARGINE
  7. GLIPIZIDE. [Concomitant]
     Active Substance: GLIPIZIDE
  8. OSTEO BI FLEX [Concomitant]
  9. CALC ACETATE [Concomitant]
     Active Substance: CALCIUM ACETATE
  10. RAYALDEE [Concomitant]
     Active Substance: CALCIFEDIOL
  11. VOSEVI [Suspect]
     Active Substance: SOFOSBUVIR\VELPATASVIR\VOXILAPREVIR
     Route: 048
     Dates: start: 20210804
  12. BABY ASPIRIN [Concomitant]
     Active Substance: ASPIRIN
  13. LISINOPRIL. [Concomitant]
     Active Substance: LISINOPRIL
  14. OMEGA 3 [Concomitant]
     Active Substance: OMEGA-3 FATTY ACIDS

REACTIONS (1)
  - Dyspnoea [None]
